FAERS Safety Report 5102260-0 (Version None)
Quarter: 2006Q3

REPORT INFORMATION
  Report Type: 
  Country: None (occurrence: None)
  Receive Date: 20060912
  Receipt Date: 20060901
  Transmission Date: 20061208
  Serious: Yes (Other)
  Sender: FDA-Public Use
  Company Number: US-JNJFOC-20060901364

PATIENT

DRUGS (1)
  1. RISPERDAL [Suspect]
     Indication: PARANOIA

REACTIONS (2)
  - MENINGIOMA [None]
  - PARANOIA [None]
